FAERS Safety Report 9875788 (Version 2)
Quarter: 2014Q1

REPORT INFORMATION
  Report Type: Spontaneous
  Country: CH (occurrence: None)
  Receive Date: 20140204
  Receipt Date: 20140313
  Transmission Date: 20141002
  Serious: Yes (Other)
  Sender: FDA-Public Use
  Company Number: 20140027

PATIENT
  Age: 28 Year
  Sex: Female
  Weight: 49 kg

DRUGS (1)
  1. FERINJECT [Suspect]
     Indication: IRON DEFICIENCY ANAEMIA
     Dosage: 1 IN 1 WEEK
     Route: 041
     Dates: start: 20131203, end: 20131203

REACTIONS (13)
  - Tetany [None]
  - Asthenia [None]
  - Dysarthria [None]
  - Nausea [None]
  - Headache [None]
  - Paraesthesia [None]
  - Pyrexia [None]
  - Hot flush [None]
  - Eczema [None]
  - Hypersensitivity [None]
  - Blood pressure decreased [None]
  - Hypotension [None]
  - Muscular weakness [None]
